FAERS Safety Report 9054721 (Version 3)
Quarter: 2014Q2

REPORT INFORMATION
  Report Type: Report from Study
  Country: JP (occurrence: JP)
  Receive Date: 20130208
  Receipt Date: 20140407
  Transmission Date: 20141212
  Serious: Yes (Other)
  Sender: FDA-Public Use
  Company Number: JP-VERTEX PHARMACEUTICALS INC.-2013-001698

PATIENT
  Age: 64 Year
  Sex: Male

DRUGS (8)
  1. VX-950 (TELAPREVIR) [Suspect]
     Indication: CHRONIC HEPATITIS C
     Dosage: 1500 MG, QD
     Route: 048
     Dates: start: 20120806, end: 20121106
  2. RIBAVIRIN [Suspect]
     Indication: CHRONIC HEPATITIS C
     Dosage: 600 MG, QD
     Route: 048
     Dates: start: 20120806
  3. PEGINTERFERON ALFA-2B [Suspect]
     Indication: CHRONIC HEPATITIS C
     Dosage: 1.5 ?G/KG, QW
     Route: 058
     Dates: start: 20120806
  4. ALLEGRA [Concomitant]
     Dosage: 120 MG, QD
     Route: 048
  5. MAGLAX [Concomitant]
     Dosage: 990 MG, QD
     Route: 048
  6. MAGLAX [Concomitant]
     Dosage: UNK, PRN
     Route: 048
  7. ALOSITOL [Concomitant]
     Dosage: 100 MG, QD
     Route: 048
     Dates: start: 20120806, end: 20121105
  8. GASPORT-D [Concomitant]
     Dosage: 40 MG, QD
     Route: 048
     Dates: start: 20121218

REACTIONS (1)
  - White blood cell count decreased [Recovered/Resolved]
